APPROVED DRUG PRODUCT: MITOXANTRONE HYDROCHLORIDE
Active Ingredient: MITOXANTRONE HYDROCHLORIDE
Strength: EQ 25MG BASE/12.5ML (EQ 2MG BASE/ML)
Dosage Form/Route: INJECTABLE;INJECTION
Application: A078606 | Product #002
Applicant: FRESENIUS KABI ONCOLOGY PLC
Approved: May 14, 2008 | RLD: No | RS: No | Type: DISCN